FAERS Safety Report 8336402-0 (Version None)
Quarter: 2012Q2

REPORT INFORMATION
  Report Type: 
  Country: None (occurrence: None)
  Receive Date: 20120504
  Receipt Date: 20120430
  Transmission Date: 20120825
  Serious: Yes (Disabling)
  Sender: FDA-Public Use
  Company Number: PHHY2012IT037071

PATIENT
  Sex: Female

DRUGS (6)
  1. LEVOTHYROXINE SODIUM [Concomitant]
  2. VALPRESSION [Concomitant]
  3. DURAGESIC-100 [Concomitant]
  4. ZOMETA [Suspect]
     Indication: BREAST CANCER METASTATIC
     Route: 042
     Dates: start: 20060801, end: 20080401
  5. MICARDIS [Concomitant]
  6. ZOMETA [Suspect]
     Route: 042
     Dates: start: 20100101, end: 20101216

REACTIONS (2)
  - EXPOSED BONE IN JAW [None]
  - OSTEONECROSIS OF JAW [None]
